FAERS Safety Report 11651444 (Version 1)
Quarter: 2015Q4

REPORT INFORMATION
  Report Type: Other
  Country: GB (occurrence: GB)
  Receive Date: 20151022
  Receipt Date: 20151022
  Transmission Date: 20160304
  Serious: Yes (Hospitalization, Disabling, Other)
  Sender: FDA-Public Use
  Company Number: GB-GLENMARK PHARMACEUTICALS INC, USA.-2015GMK020171

PATIENT

DRUGS (1)
  1. METFORMIN [Suspect]
     Active Substance: METFORMIN HYDROCHLORIDE
     Indication: WEIGHT DECREASED
     Dosage: 1 G, UNK
     Route: 048
     Dates: start: 20130218, end: 20130320

REACTIONS (5)
  - Off label use [Unknown]
  - Intracranial pressure increased [Recovered/Resolved with Sequelae]
  - Visual impairment [Not Recovered/Not Resolved]
  - Papilloedema [Unknown]
  - Headache [Unknown]

NARRATIVE: CASE EVENT DATE: 20130218
